FAERS Safety Report 13415788 (Version 6)
Quarter: 2018Q4

REPORT INFORMATION
  Report Type: Report from Study
  Country: US (occurrence: US)
  Receive Date: 20170407
  Receipt Date: 20181121
  Transmission Date: 20190204
  Serious: Yes (Hospitalization, Other)
  Sender: FDA-Public Use
  Company Number: US-SA-2017SA057952

PATIENT
  Age: 32 Year
  Sex: Male

DRUGS (14)
  1. ALEMTUZUMAB [Suspect]
     Active Substance: ALEMTUZUMAB
     Dosage: 12 MG,QD
     Route: 041
     Dates: start: 20170330, end: 20170330
  2. LORATADINE. [Concomitant]
     Active Substance: LORATADINE
     Dosage: 10 MG,UNK
     Route: 065
  3. ALEMTUZUMAB [Suspect]
     Active Substance: ALEMTUZUMAB
     Dosage: 12 MG,QD
     Route: 041
     Dates: start: 20170515, end: 20170515
  4. DEPAKOTE [Concomitant]
     Active Substance: DIVALPROEX SODIUM
     Dosage: 250 MG,BID
     Route: 065
     Dates: start: 2015
  5. VIMPAT [Concomitant]
     Active Substance: LACOSAMIDE
     Dosage: 200 MG,BID
     Route: 065
  6. PREDNISONE. [Concomitant]
     Active Substance: PREDNISONE
     Dosage: 10 MG,UNK
     Route: 065
  7. DEPAKOTE [Concomitant]
     Active Substance: DIVALPROEX SODIUM
     Dosage: 500 MG,BID
     Route: 065
  8. ALEMTUZUMAB [Suspect]
     Active Substance: ALEMTUZUMAB
     Dosage: 12 MG,QD
     Route: 041
     Dates: start: 20170509, end: 20170509
  9. ALEMTUZUMAB [Suspect]
     Active Substance: ALEMTUZUMAB
     Dosage: 12 MG,QD
     Route: 041
     Dates: start: 20170522, end: 20170522
  10. ONDANSETRON [Concomitant]
     Active Substance: ONDANSETRON
     Dosage: 8 MG,UNK
     Route: 065
  11. FAMOTIDINE. [Concomitant]
     Active Substance: FAMOTIDINE
     Dosage: 20 MG,UNK
     Route: 065
  12. ACICLOVIR [Concomitant]
     Active Substance: ACYCLOVIR
     Dosage: 200 MG,UNK
     Route: 065
  13. KEPPRA [Concomitant]
     Active Substance: LEVETIRACETAM
     Dosage: 750 MG,BID
     Route: 065
     Dates: start: 2015
  14. ALEMTUZUMAB [Suspect]
     Active Substance: ALEMTUZUMAB
     Dosage: 12 MG,QD
     Route: 041
     Dates: start: 20170502, end: 20170502

REACTIONS (10)
  - Back pain [Recovered/Resolved]
  - Autoimmune disorder [Unknown]
  - Oxygen saturation decreased [Recovered/Resolved]
  - Infusion related reaction [Unknown]
  - Mental status changes [Not Recovered/Not Resolved]
  - Movement disorder [Recovered/Resolved]
  - Partial seizures [Recovered/Resolved]
  - Infection [Unknown]
  - Chest pain [Recovered/Resolved]
  - Heart rate increased [Recovered/Resolved]

NARRATIVE: CASE EVENT DATE: 2017
